FAERS Safety Report 4283595-0 (Version None)
Quarter: 2004Q1

REPORT INFORMATION
  Report Type: 
  Country: None (occurrence: None)
  Receive Date: 20040202
  Receipt Date: 20040122
  Transmission Date: 20041129
  Serious: Yes (Other)
  Sender: FDA-Public Use
  Company Number: GB-GLAXOSMITHKLINE-B0320767A

PATIENT
  Age: 38 Year
  Sex: Male
  Weight: 85 kg

DRUGS (3)
  1. BUPROPION HYDROCHLORIDE [Suspect]
     Indication: EX-SMOKER
     Route: 048
     Dates: start: 20010102, end: 20010120
  2. CO-CODAMOL [Suspect]
     Route: 065
  3. CHLORPHENIRAMINE MALEATE [Concomitant]
     Route: 065
     Dates: end: 20010124

REACTIONS (2)
  - ANGIONEUROTIC OEDEMA [None]
  - DRUG INTERACTION [None]
